FAERS Safety Report 9393989 (Version 1)
Quarter: 2013Q3

REPORT INFORMATION
  Report Type: Spontaneous
  Country: US (occurrence: US)
  Receive Date: 20130710
  Receipt Date: 20130710
  Transmission Date: 20140515
  Serious: Yes (Other)
  Sender: FDA-Public Use
  Company Number: CHPA2013US010955

PATIENT
  Age: 51 Year
  Sex: Female

DRUGS (6)
  1. CONTROL PLP [Suspect]
     Indication: SMOKING CESSATION THERAPY
     Dosage: 21 MG, UNK
     Route: 062
     Dates: start: 20130708
  2. CONTROL PLP [Suspect]
     Dosage: 14 MG, UNK
     Route: 062
     Dates: start: 20130409, end: 20130411
  3. BENICAR [Concomitant]
     Dosage: UNK, UNK
     Dates: start: 2013
  4. CELEXA [Concomitant]
     Dosage: UNK, UNK
     Dates: start: 2013
  5. ASPIRIN [Concomitant]
     Dosage: 81 MG, QD
     Dates: start: 201304
  6. CRESTOR [Concomitant]
     Dosage: UNK, UNK
     Dates: start: 201304

REACTIONS (7)
  - Tooth abscess [Recovering/Resolving]
  - Dyspnoea [Not Recovered/Not Resolved]
  - Paraesthesia oral [Recovered/Resolved]
  - Pruritus [Not Recovered/Not Resolved]
  - Hyperhidrosis [Not Recovered/Not Resolved]
  - Application site pruritus [Not Recovered/Not Resolved]
  - Underdose [Unknown]
